FAERS Safety Report 4978323-7 (Version None)
Quarter: 2006Q1

REPORT INFORMATION
  Report Type: 
  Country: None (occurrence: None)
  Receive Date: 20060222
  Receipt Date: 20050826
  Transmission Date: 20060701
  Serious: Yes (Other)
  Sender: FDA-Public Use
  Company Number: 2005-08-2112

PATIENT
  Age: 54 Year
  Sex: Female
  Weight: 47.6277 kg

DRUGS (7)
  1. CLARINEX [Suspect]
     Dosage: ORAL
     Route: 048
     Dates: end: 20050725
  2. BENICAR [Concomitant]
  3. CALCIUM GLUCONATE [Concomitant]
  4. GLUCOSAMINE/CHONDROITIN [Concomitant]
  5. ASPIRIN [Concomitant]
  6. MULTIVITAMIN [Concomitant]
  7. FERGON [Concomitant]

REACTIONS (1)
  - ANAPHYLACTIC REACTION [None]
